FAERS Safety Report 9445531 (Version 1)
Quarter: 2013Q3

REPORT INFORMATION
  Report Type: Spontaneous
  Country: US (occurrence: CA)
  Receive Date: 20130807
  Receipt Date: 20130807
  Transmission Date: 20140515
  Serious: Yes (Life-Threatening, Hospitalization, Other)
  Sender: FDA-Public Use
  Company Number: US-JNJFOC-20130800691

PATIENT
  Age: 3 Year
  Sex: Female
  Weight: 14.4 kg

DRUGS (2)
  1. CODEINE [Suspect]
     Indication: PROCEDURAL PAIN
     Route: 065
  2. CODEINE AND ACETAMINOPHEN [Suspect]
     Indication: PROCEDURAL PAIN
     Dosage: 15MG/150MG EVERY 4 TO 6 HOURS AS NEEDED
     Route: 065

REACTIONS (5)
  - Unresponsive to stimuli [Recovered/Resolved]
  - Oxygen saturation decreased [Recovered/Resolved]
  - Haematemesis [Recovered/Resolved]
  - Toxicity to various agents [Recovered/Resolved]
  - Pyrexia [Recovered/Resolved]
